FAERS Safety Report 10236479 (Version 1)
Quarter: 2014Q2

REPORT INFORMATION
  Report Type: Spontaneous
  Country: GB (occurrence: GB)
  Receive Date: 20140613
  Receipt Date: 20140613
  Transmission Date: 20141212
  Serious: Yes (Life-Threatening, Hospitalization, Other)
  Sender: FDA-Public Use
  Company Number: GB-BRISTOL-MYERS SQUIBB COMPANY-20949038

PATIENT
  Age: 88 Year
  Sex: Male
  Weight: 79 kg

DRUGS (12)
  1. HYDROXYCARBAMIDE [Suspect]
     Indication: JANUS KINASE 2 MUTATION
     Dosage: SLOWLY TITRATED TO 1G/500MG
     Route: 048
     Dates: start: 20131115, end: 20140519
  2. CARBOCISTEINE [Concomitant]
  3. CIPROFLOXACIN [Concomitant]
     Indication: SEPSIS
  4. GENTAMICIN [Concomitant]
  5. QVAR [Concomitant]
  6. PARACETAMOL [Concomitant]
  7. SALBUTAMOL [Concomitant]
  8. SALMETEROL [Concomitant]
  9. TRIMETHOPRIM [Concomitant]
  10. VANCOMYCIN [Concomitant]
     Indication: SEPSIS
  11. METRONIDAZOLE [Concomitant]
     Indication: SEPSIS
  12. OMEPRAZOLE [Concomitant]

REACTIONS (2)
  - Pancytopenia [Recovering/Resolving]
  - Pyrexia [Unknown]
